FAERS Safety Report 14419097 (Version 4)
Quarter: 2018Q2

REPORT INFORMATION
  Report Type: Spontaneous
  Country: US (occurrence: US)
  Receive Date: 20180122
  Receipt Date: 20180608
  Transmission Date: 20180711
  Serious: Yes (Hospitalization, Other)
  Sender: FDA-Public Use
  Company Number: US-BIOGEN-2018BI00513232

PATIENT
  Sex: Female

DRUGS (2)
  1. AVONEX [Suspect]
     Active Substance: INTERFERON BETA-1A
     Indication: MULTIPLE SCLEROSIS
     Route: 065
     Dates: start: 20140328, end: 20180116
  2. AVONEX [Suspect]
     Active Substance: INTERFERON BETA-1A
     Route: 065

REACTIONS (7)
  - Cardiovascular symptom [Unknown]
  - Nausea [Recovered/Resolved]
  - Infection [Unknown]
  - Internal haemorrhage [Unknown]
  - Thrombosis [Unknown]
  - Colitis [Unknown]
  - Weight decreased [Not Recovered/Not Resolved]
